FAERS Safety Report 9830943 (Version 4)
Quarter: 2014Q2

REPORT INFORMATION
  Report Type: Spontaneous
  Country: GB (occurrence: GB)
  Receive Date: 20140120
  Receipt Date: 20140407
  Transmission Date: 20141212
  Serious: Yes (Other)
  Sender: FDA-Public Use
  Company Number: PHFR2013GB005444

PATIENT
  Age: 26 Year
  Sex: Male

DRUGS (5)
  1. CLOZARIL [Suspect]
     Indication: SCHIZOPHRENIA
     Dosage: UNK
     Route: 048
     Dates: start: 20051216
  2. CLOZARIL [Suspect]
     Dosage: 450 MG, DAILY
     Route: 048
  3. DEPAKOTE [Concomitant]
     Indication: TEMPORAL LOBE EPILEPSY
     Dosage: 1500 MG, UNK
     Route: 048
  4. SERTRALINE [Concomitant]
     Indication: DEPRESSED MOOD
     Dosage: 100 MG, UNK
     Route: 048
  5. HYOSCINE HYDROBROMIDE [Concomitant]
     Indication: SALIVARY HYPERSECRETION
     Dosage: 900 MG, UNK
     Route: 048

REACTIONS (5)
  - Cardiac failure [Not Recovered/Not Resolved]
  - Tachycardia [Not Recovered/Not Resolved]
  - Differential white blood cell count abnormal [Recovering/Resolving]
  - White blood cell count increased [Not Recovered/Not Resolved]
  - Neutrophil count increased [Recovered/Resolved]
